FAERS Safety Report 5603654-7 (Version None)
Quarter: 2008Q1

REPORT INFORMATION
  Report Type: 
  Country: None (occurrence: None)
  Receive Date: 20080123
  Receipt Date: 20080117
  Transmission Date: 20080703
  Serious: Yes (Other)
  Sender: FDA-Public Use
  Company Number: 2007SP024744

PATIENT
  Age: 53 Year
  Sex: Male
  Weight: 84.369 kg

DRUGS (1)
  1. PEG-INTRON [Suspect]
     Indication: HEPATITIS C
     Dosage: 50 MCG; QW; SC
     Route: 058
     Dates: start: 20070402, end: 20071128

REACTIONS (1)
  - PULMONARY HYPERTENSION [None]
